FAERS Safety Report 5919865-7 (Version None)
Quarter: 2008Q3

REPORT INFORMATION
  Report Type: 
  Country: None (occurrence: None)
  Receive Date: 20080909
  Receipt Date: 20070615
  Transmission Date: 20090109
  Serious: Yes (Hospitalization)
  Sender: FDA-Public Use
  Company Number: 163-20785-07060919 (0)

PATIENT
  Age: 68 Year
  Sex: Male

DRUGS (18)
  1. THALOMID [Suspect]
     Indication: MULTIPLE MYELOMA
     Dosage: ORAL ; ORAL
     Route: 048
     Dates: start: 20060215
  2. THALOMID [Suspect]
     Indication: MULTIPLE MYELOMA
     Dosage: ORAL ; ORAL
     Route: 048
     Dates: start: 20060320
  3. MELPHALAN (MELPHALAN) [Suspect]
     Indication: MULTIPLE MYELOMA
     Dosage: 400 MG, INTRAVENOUS
     Route: 042
     Dates: start: 20060429
  4. TOPROL XL (METOPROLOL SUCCINATE) (TABLETS) [Concomitant]
  5. OXYCODONE HCL (OXYCODONE) (TABLETS) [Concomitant]
  6. K-DUR (POTASSIUM CHLORIDE) (TABLETS) [Concomitant]
  7. ZOLOFT [Concomitant]
  8. PROTONIX (PANTOPRAZOLE) (TABLETS) [Concomitant]
  9. AMBIEN [Concomitant]
  10. PROCRIT (ERYTHROPOIETIN) (SOLUTION) [Concomitant]
  11. TRIAMCINOLONE ACETONIDE (TRIAMCINOLONE ACETONIDE) (OINTMENT) [Concomitant]
  12. PRIMAXIN (PRIMAXIN) [Concomitant]
  13. VANCOMYCIN HCL (VANCOMYCIN HYDROCHLORIDE) [Concomitant]
  14. NEURONTIN [Concomitant]
  15. LOVENOX [Concomitant]
  16. ACETAMINOPHEN (PARACETAMOL) (325 MILLIGRAM, TABLETS) [Concomitant]
  17. FOLIC ACID (FOLIC ACID) (TABLETS) [Concomitant]
  18. POTASSIUM CHLORIDE [Concomitant]

REACTIONS (2)
  - MUSCULAR WEAKNESS [None]
  - PAIN IN EXTREMITY [None]
